FAERS Safety Report 16368508 (Version 2)
Quarter: 2020Q2

REPORT INFORMATION
  Report Type: Report from Study
  Country: CA (occurrence: CA)
  Receive Date: 20190529
  Receipt Date: 20200401
  Transmission Date: 20200713
  Serious: Yes (Other)
  Sender: FDA-Public Use
  Company Number: CA-GLAXOSMITHKLINE-CA2019GSK095231

PATIENT
  Sex: Female

DRUGS (2)
  1. MEPOLIZUMAB [Suspect]
     Active Substance: MEPOLIZUMAB
     Indication: ASTHMA
     Dosage: 100 MG, Z (ONE MONTH)
     Route: 042
     Dates: start: 20190311
  2. MEPOLIZUMAB [Suspect]
     Active Substance: MEPOLIZUMAB
     Dosage: 100 MG, Z MONTHLY
     Route: 042

REACTIONS (6)
  - Dyspnoea [Unknown]
  - Lung neoplasm malignant [Unknown]
  - Wheezing [Unknown]
  - Pulmonary mass [Unknown]
  - Asthma [Unknown]
  - Loss of personal independence in daily activities [Unknown]
